FAERS Safety Report 8124006-4 (Version None)
Quarter: 2012Q1

REPORT INFORMATION
  Report Type: 
  Country: None (occurrence: None)
  Receive Date: 20120209
  Receipt Date: 20120201
  Transmission Date: 20120608
  Serious: Yes (Other)
  Sender: FDA-Public Use
  Company Number: JP-JNJFOC-20120202879

PATIENT

DRUGS (2)
  1. ITRACONAZOLE [Suspect]
     Indication: ANTIFUNGAL PROPHYLAXIS
     Route: 048
  2. CORTICOSTEROID NOS [Concomitant]
     Indication: PRODUCT USED FOR UNKNOWN INDICATION
     Route: 065

REACTIONS (1)
  - BLOOD BILIRUBIN INCREASED [None]
